FAERS Safety Report 9054772 (Version 1)
Quarter: 2013Q1

REPORT INFORMATION
  Report Type: Spontaneous
  Country: IT (occurrence: IT)
  Receive Date: 20130208
  Receipt Date: 20130208
  Transmission Date: 20140127
  Serious: Yes (Other)
  Sender: FDA-Public Use
  Company Number: IT-SANOFI-AVENTIS-2013SA008548

PATIENT
  Age: 85 Year
  Sex: Female

DRUGS (2)
  1. LASIX [Suspect]
     Indication: PRODUCT USED FOR UNKNOWN INDICATION
     Route: 048
     Dates: start: 20111110, end: 20121109
  2. LUVION [Suspect]
     Indication: PRODUCT USED FOR UNKNOWN INDICATION
     Route: 048
     Dates: start: 20111110, end: 20121109

REACTIONS (2)
  - Renal failure [Not Recovered/Not Resolved]
  - Dehydration [Not Recovered/Not Resolved]
